FAERS Safety Report 25940944 (Version 1)
Quarter: 2025Q4

REPORT INFORMATION
  Report Type: Spontaneous
  Country: US (occurrence: None)
  Receive Date: 20251019
  Receipt Date: 20251019
  Transmission Date: 20260119
  Serious: Yes (Hospitalization)
  Sender: FDA-CTU
  Company Number: None

PATIENT
  Sex: Female

DRUGS (1)
  1. RASUVO [Suspect]
     Active Substance: METHOTREXATE SODIUM
     Indication: Spinal osteoarthritis
     Dosage: OTHER FREQUENCY : WEEKLY;?
     Route: 058
     Dates: start: 20171003

REACTIONS (5)
  - Hot flush [None]
  - Dizziness [None]
  - Vomiting [None]
  - Hypertension [None]
  - Dizziness [None]
